FAERS Safety Report 5066278-9 (Version None)
Quarter: 2006Q3

REPORT INFORMATION
  Report Type: 
  Country: None (occurrence: None)
  Receive Date: 20060728
  Receipt Date: 20060718
  Transmission Date: 20061208
  Serious: Yes (Hospitalization)
  Sender: FDA-Public Use
  Company Number: 2006-07-1200

PATIENT
  Age: 53 Year
  Sex: Female

DRUGS (3)
  1. PEG-INTRON [Suspect]
     Indication: HEPATITIS C
     Dosage: 80-150 MCG SUBCUTANEOUS
     Route: 058
     Dates: start: 20060115
  2. RIBAVIRIN [Suspect]
     Indication: HEPATITIS C
     Dosage: 200 MG BID ORAL
     Route: 048
     Dates: start: 20060115
  3. IBUPROFEN TABLETS [Concomitant]

REACTIONS (5)
  - BACK PAIN [None]
  - DEHYDRATION [None]
  - INJECTION SITE RASH [None]
  - NECK PAIN [None]
  - PNEUMONIA [None]
